FAERS Safety Report 22973613 (Version 4)
Quarter: 2023Q4

REPORT INFORMATION
  Report Type: Report from Study
  Country: CA (occurrence: CA)
  Receive Date: 20230922
  Receipt Date: 20231201
  Transmission Date: 20240110
  Serious: Yes (Other)
  Sender: FDA-Public Use
  Company Number: CA-PFIZER INC-PV202300154592

PATIENT
  Age: 64 Year
  Sex: Male
  Weight: 105.2 kg

DRUGS (4)
  1. CIBINQO [Suspect]
     Active Substance: ABROCITINIB
     Indication: Dermatitis atopic
     Dosage: 100 MG, 1X/DAY
     Route: 048
     Dates: start: 20190403, end: 20220720
  2. AVOBENZONE/OCTINOXATE [Concomitant]
     Indication: Prophylaxis
     Dosage: JACK BLACK DOUBLE DUTY FACE MOISTURIZER WITH SPF 20, EMOLLIENT
     Dates: start: 20190101
  3. ALLOPURINOL [Concomitant]
     Active Substance: ALLOPURINOL
     Indication: Gout
     Dosage: UNK
     Dates: start: 2008
  4. FLUOCINONIDE [Concomitant]
     Active Substance: FLUOCINONIDE
     Indication: Eczema
     Dosage: UNK
     Dates: start: 20211001

REACTIONS (1)
  - Atypical fibroxanthoma [Not Recovered/Not Resolved]

NARRATIVE: CASE EVENT DATE: 20230601
